FAERS Safety Report 6537571-5 (Version None)
Quarter: 2010Q1

REPORT INFORMATION
  Report Type: 
  Country: None (occurrence: None)
  Receive Date: 20100114
  Receipt Date: 20091016
  Transmission Date: 20100710
  Serious: Yes (Hospitalization)
  Sender: FDA-Public Use
  Company Number: PL-ROCHE-678924

PATIENT
  Sex: Male
  Weight: 81 kg

DRUGS (11)
  1. BEVACIZUMAB [Suspect]
     Route: 042
     Dates: start: 20090523, end: 20091016
  2. BEVACIZUMAB [Suspect]
     Route: 042
  3. TEMSIROLIMUS [Suspect]
     Route: 042
     Dates: start: 20090523, end: 20091016
  4. TEMSIROLIMUS [Suspect]
     Route: 042
  5. ATORVASTATINUM [Concomitant]
     Indication: PROPHYLAXIS
     Dates: start: 20090627
  6. CLONIDINE HYDROCHLORIDE [Concomitant]
     Indication: PROPHYLAXIS
     Dates: start: 20070601
  7. RAMIPRILUM [Concomitant]
     Indication: PROPHYLAXIS
     Dates: start: 20070601
  8. AMILORIDE HYDROCHLORIDE [Concomitant]
     Indication: PROPHYLAXIS
     Dosage: DRUG: AMILORIDUM
     Dates: start: 20070601
  9. OMEPRAZOLE [Concomitant]
     Indication: PROPHYLAXIS AGAINST GASTROINTESTINAL ULCER
     Dates: start: 20090301
  10. FENOFIBRATUM [Concomitant]
     Dates: start: 20090813
  11. METFORMIN HYDROCHLORIDE [Concomitant]
     Indication: DIABETES MELLITUS
     Dates: start: 20090821

REACTIONS (1)
  - RENAL DISORDER [None]
